FAERS Safety Report 18023143 (Version 2)
Quarter: 2020Q3

REPORT INFORMATION
  Report Type: Spontaneous
  Country: US (occurrence: US)
  Receive Date: 20200714
  Receipt Date: 20200730
  Transmission Date: 20201103
  Serious: No
  Sender: FDA-Public Use
  Company Number: US-009507513-2007USA004407

PATIENT
  Age: 67 Year
  Sex: Female

DRUGS (3)
  1. ASMANEX [Suspect]
     Active Substance: MOMETASONE FUROATE
     Indication: ASTHMA
     Dosage: 60 DOSAGE FORM
     Dates: start: 202006
  2. ASMANEX [Suspect]
     Active Substance: MOMETASONE FUROATE
     Indication: ASTHMA
     Dosage: 60 DOSAGE FORM
     Dates: start: 2005
  3. ASMANEX [Suspect]
     Active Substance: MOMETASONE FUROATE
     Indication: ASTHMA
     Dosage: 60 DOSAGE FORM
     Dates: start: 20200629

REACTIONS (12)
  - Stomatitis [Recovered/Resolved]
  - Tongue discolouration [Unknown]
  - Illness [Unknown]
  - Fall [Unknown]
  - Trigger finger [Unknown]
  - Carpal tunnel syndrome [Unknown]
  - Poor quality device used [Unknown]
  - Product dose omission issue [Unknown]
  - Upper limb fracture [Unknown]
  - Device malfunction [Unknown]
  - Poor quality device used [Unknown]
  - Decreased immune responsiveness [Unknown]

NARRATIVE: CASE EVENT DATE: 2005
